FAERS Safety Report 11440751 (Version 1)
Quarter: 2015Q3

REPORT INFORMATION
  Report Type: Spontaneous
  Country: US (occurrence: US)
  Receive Date: 20150821
  Receipt Date: 20150821
  Transmission Date: 20151125
  Serious: No
  Sender: FDA-Public Use
  Company Number: US-ELI_LILLY_AND_COMPANY-US200707004442

PATIENT
  Sex: Male

DRUGS (5)
  1. CYMBALTA [Suspect]
     Active Substance: DULOXETINE HYDROCHLORIDE
     Dosage: 60 MG, DAILY (1/D)
     Route: 048
     Dates: start: 200706
  2. XANAX [Concomitant]
     Active Substance: ALPRAZOLAM
  3. CYMBALTA [Suspect]
     Active Substance: DULOXETINE HYDROCHLORIDE
     Dosage: 30 MG, QOD
     Route: 048
     Dates: start: 2007
  4. KAVA [Concomitant]
     Active Substance: PIPER METHYSTICUM ROOT
  5. CYMBALTA [Suspect]
     Active Substance: DULOXETINE HYDROCHLORIDE
     Indication: DEPRESSION
     Dosage: 30 MG, UNK
     Route: 048
     Dates: start: 200705

REACTIONS (13)
  - Anger [Recovered/Resolved]
  - Anxiety [Recovered/Resolved]
  - Vomiting [Unknown]
  - Nervousness [Unknown]
  - Apathy [Unknown]
  - Nausea [Unknown]
  - Feeling abnormal [Unknown]
  - Insomnia [Recovered/Resolved]
  - Asthenia [Recovering/Resolving]
  - Vision blurred [Unknown]
  - Dizziness [Unknown]
  - Drug ineffective [Not Recovered/Not Resolved]
  - Diarrhoea [Unknown]

NARRATIVE: CASE EVENT DATE: 2007
